FAERS Safety Report 21728109 (Version 1)
Quarter: 2022Q4

REPORT INFORMATION
  Report Type: Report from Study
  Country: GB (occurrence: GB)
  Receive Date: 20221214
  Receipt Date: 20221214
  Transmission Date: 20230112
  Serious: Yes (Death)
  Sender: FDA-Public Use
  Company Number: GB-002147023-NVSC2021GB291154

PATIENT
  Sex: Female

DRUGS (9)
  1. COSENTYX [Suspect]
     Active Substance: SECUKINUMAB
     Indication: Ankylosing spondylitis
     Dosage: 150 MG, QMO
     Route: 058
     Dates: start: 20200613
  2. COSENTYX [Suspect]
     Active Substance: SECUKINUMAB
     Dosage: 150 MG, QMO
     Route: 058
     Dates: start: 202204
  3. COSENTYX [Suspect]
     Active Substance: SECUKINUMAB
     Dosage: 150 MG, QMO- (12 OCT OF UNSPECIFIED YEAR)
     Route: 065
  4. VENLAFAXINE [Concomitant]
     Active Substance: VENLAFAXINE HYDROCHLORIDE
     Indication: Product used for unknown indication
     Dosage: UNK
     Route: 065
  5. DIAZEPAM [Concomitant]
     Active Substance: DIAZEPAM
     Indication: Product used for unknown indication
     Dosage: UNK
     Route: 065
  6. MIRTAZAPINE [Concomitant]
     Active Substance: MIRTAZAPINE
     Indication: Product used for unknown indication
     Dosage: UNK
     Route: 065
  7. AMITRIPTYLINE [Concomitant]
     Active Substance: AMITRIPTYLINE
     Indication: Product used for unknown indication
     Route: 065
  8. LEVOTHYROXINE [Concomitant]
     Active Substance: LEVOTHYROXINE
     Indication: Product used for unknown indication
     Dosage: UNK
     Route: 065
  9. PREGABALIN [Concomitant]
     Active Substance: PREGABALIN
     Indication: Product used for unknown indication
     Dosage: UNK
     Route: 065

REACTIONS (15)
  - Death [Fatal]
  - Malaise [Unknown]
  - Arthritis [Unknown]
  - COVID-19 [Unknown]
  - Bronchitis [Unknown]
  - Fibromyalgia [Unknown]
  - Muscle spasms [Unknown]
  - Speech disorder [Unknown]
  - Stress [Unknown]
  - Feeling abnormal [Unknown]
  - Gait disturbance [Unknown]
  - Lower respiratory tract infection [Unknown]
  - Rash [Unknown]
  - Skin burning sensation [Unknown]
  - Inappropriate schedule of product administration [Unknown]

NARRATIVE: CASE EVENT DATE: 20221126
